FAERS Safety Report 7456366-1 (Version None)
Quarter: 2011Q2

REPORT INFORMATION
  Report Type: 
  Country: None (occurrence: None)
  Receive Date: 20110426
  Receipt Date: 20110411
  Transmission Date: 20111010
  Serious: Yes (Other)
  Sender: FDA-Public Use
  Company Number: 2011MA003701

PATIENT
  Age: 20 Year
  Sex: Male

DRUGS (2)
  1. LEVETIRACETAM [Suspect]
     Indication: CONVULSION
     Dosage: 1500 MG; PO
     Route: 048
  2. VALPROATE SODIUM [Concomitant]

REACTIONS (5)
  - PSYCHOTIC DISORDER [None]
  - MENTAL STATUS CHANGES [None]
  - HALLUCINATION, AUDITORY [None]
  - AGGRESSION [None]
  - AGITATION [None]
